FAERS Safety Report 9337200 (Version 1)
Quarter: 2013Q2

REPORT INFORMATION
  Report Type: Spontaneous
  Country: CA (occurrence: CA)
  Receive Date: 20130607
  Receipt Date: 20130607
  Transmission Date: 20140414
  Serious: Yes (Disabling)
  Sender: FDA-Public Use
  Company Number: CA-PFIZER INC-2013126885

PATIENT
  Age: 95 Year
  Sex: Female
  Weight: 62 kg

DRUGS (18)
  1. AROMASIN [Suspect]
     Indication: BREAST CANCER
     Dosage: 25 MG, 1X/DAY IN THE MORNING
     Route: 048
     Dates: start: 201302
  2. ATIVAN [Concomitant]
     Indication: ANXIETY
     Dosage: 0.5 MG, THREE TIMES DAILY AS NEEDED
     Route: 060
  3. MYOFLEX [Concomitant]
     Dosage: APPLIED LOCALLY 3X/DAY AS NEEDED
     Route: 061
  4. VOLTAREN EMULGEL ^NOVARTIS^ [Concomitant]
     Indication: PAIN
     Dosage: APPLIED LOCALLY 3X/DAY AS NEEDED
     Route: 061
  5. NORVASC [Concomitant]
     Indication: HYPERTENSION
     Dosage: 5 MG TABLET X 1 1/2 TABLET (TABLETS CUT IN 2), 1X/DAY IN THE MORNING
  6. DIAMICRON [Concomitant]
     Dosage: 80 MG, 1X/DAY WITH FOOD
  7. SYNTHROID [Concomitant]
     Indication: THYROID DISORDER
     Dosage: 0.05 MG, 1X/DAY IN THE MORNING
  8. PANTOLOC ^SOLVAY^ [Concomitant]
     Indication: HYPERCHLORHYDRIA
     Dosage: 40 MG, 1X/DAY 30 MIN BEFORE BREAKFAST
  9. VITAMIN B12 [Concomitant]
     Indication: VITAMIN SUPPLEMENTATION
     Dosage: 250 UG, 1X/DAY AT BREAKFAST
  10. JANUVIA [Concomitant]
     Indication: DIABETES MELLITUS
     Dosage: 50 MG, 1X/DAY AT THE SAME HOUR
  11. AVAPRO [Concomitant]
     Indication: HYPERTENSION
     Dosage: 75 MG, 2X/DAY IN THE MORNING AND AFTERNOON
  12. PMS-METOPROLOL [Concomitant]
     Indication: HYPERTENSION
     Dosage: 25 MG (1/2 TABLET) 2X/DAY AT BREAKFAST AND DINNER
  13. NUCYNTA [Concomitant]
     Indication: PAIN
     Dosage: 50 MG TABLET, 2X/DAY
  14. TYLENOL [Concomitant]
     Indication: PAIN
     Dosage: 650 MG, 1 -2 TABLETS AT BEDTIME AND EVERY 8 HOURS AS NEEDED
  15. TYLENOL [Concomitant]
     Indication: PYREXIA
  16. CELEBREX [Concomitant]
     Indication: PAIN
     Dosage: 1X/DAY WITH FOOD AS NEEDED
  17. CELEBREX [Concomitant]
     Indication: INFLAMMATION
  18. TRIMO SAN-DEODORANT [Concomitant]
     Dosage: UNK
     Route: 067

REACTIONS (2)
  - Deafness [Not Recovered/Not Resolved]
  - Tinnitus [Not Recovered/Not Resolved]
